FAERS Safety Report 12068226 (Version 1)
Quarter: 2016Q1

REPORT INFORMATION
  Report Type: Spontaneous
  Country: US (occurrence: US)
  Receive Date: 20160211
  Receipt Date: 20160211
  Transmission Date: 20160526
  Serious: No
  Sender: FDA-Public Use
  Company Number: US-SMITH AND NEPHEW, INC-2015SMT00449

PATIENT
  Age: 90 Year
  Sex: Female

DRUGS (1)
  1. REGRANEX [Suspect]
     Active Substance: BECAPLERMIN
     Indication: WOUND
     Dosage: UNK UNK, EVERY 48 HOURS
     Route: 061

REACTIONS (3)
  - Inappropriate schedule of drug administration [Unknown]
  - Off label use [Unknown]
  - Application site infection [Recovered/Resolved]

NARRATIVE: CASE EVENT DATE: 201510
